FAERS Safety Report 7055304-3 (Version None)
Quarter: 2010Q4

REPORT INFORMATION
  Report Type: 
  Country: None (occurrence: None)
  Receive Date: 20101020
  Receipt Date: 20101020
  Transmission Date: 20110411
  Serious: No
  Sender: FDA-Public Use
  Company Number: None

PATIENT
  Age: 69 Year
  Sex: Female
  Weight: 61.2356 kg

DRUGS (1)
  1. CEFDINIR [Suspect]
     Indication: RESPIRATORY DISORDER
     Dosage: 1 PILL TWICE A DAY
     Dates: start: 20100518, end: 20100528

REACTIONS (7)
  - ANAL PRURITUS [None]
  - BACK PAIN [None]
  - PROCTALGIA [None]
  - PRODUCT TASTE ABNORMAL [None]
  - SKIN LACERATION [None]
  - VULVOVAGINAL PAIN [None]
  - VULVOVAGINAL PRURITUS [None]
